FAERS Safety Report 5781289-3 (Version None)
Quarter: 2008Q2

REPORT INFORMATION
  Report Type: 
  Country: None (occurrence: None)
  Receive Date: 20080623
  Receipt Date: 20080423
  Transmission Date: 20081010
  Serious: No
  Sender: FDA-Public Use
  Company Number: US-BAYER-200821650NA

PATIENT
  Age: 51 Year
  Sex: Female

DRUGS (1)
  1. ANGELIQ [Suspect]
     Indication: DRUG USE FOR UNKNOWN INDICATION
     Route: 048
     Dates: start: 20080201, end: 20080420

REACTIONS (2)
  - EXTRASYSTOLES [None]
  - FEELING ABNORMAL [None]
